FAERS Safety Report 8482434-1 (Version None)
Quarter: 2012Q3

REPORT INFORMATION
  Report Type: 
  Country: None (occurrence: None)
  Receive Date: 20120702
  Receipt Date: 20120626
  Transmission Date: 20120928
  Serious: Yes (Hospitalization)
  Sender: FDA-Public Use
  Company Number: US-GLAXOSMITHKLINE-A0982476A

PATIENT
  Age: 62 Year
  Sex: Female

DRUGS (15)
  1. SIMVASTATIN [Concomitant]
  2. LISINOPRIL [Concomitant]
  3. FAMOTIDINE [Concomitant]
  4. VITAMIN D [Concomitant]
  5. FUROSEMIDE [Concomitant]
  6. MINOXIDIL [Concomitant]
  7. IRON [Concomitant]
  8. FLOVENT [Suspect]
     Indication: ASTHMA
     Dosage: 1PUFF TWICE PER DAY
     Route: 055
     Dates: start: 20100401
  9. GLIPIZIDE [Concomitant]
  10. OXYBUTYNIN [Concomitant]
  11. CRANBERRY TABLETS WITH VITAMIN C [Concomitant]
  12. METOPROLOL [Concomitant]
  13. B6 [Concomitant]
  14. CLONIDINE [Concomitant]
  15. AMLODIPINE [Concomitant]

REACTIONS (8)
  - ASTHMA [None]
  - DYSPNOEA [None]
  - OXYGEN SATURATION DECREASED [None]
  - PNEUMONIA [None]
  - MULTIPLE ALLERGIES [None]
  - MALAISE [None]
  - HAEMOGLOBIN DECREASED [None]
  - GAIT DISTURBANCE [None]
